FAERS Safety Report 12636638 (Version 1)
Quarter: 2016Q3

REPORT INFORMATION
  Report Type: Spontaneous
  Country: GB (occurrence: GB)
  Receive Date: 20160809
  Receipt Date: 20160809
  Transmission Date: 20161109
  Serious: Yes (Life-Threatening, Hospitalization)
  Sender: FDA-Public Use
  Company Number: GB-PFIZER INC-2016373886

PATIENT
  Age: 17 Year
  Sex: Male
  Weight: 38.7 kg

DRUGS (6)
  1. DAPTOMYCIN. [Concomitant]
     Active Substance: DAPTOMYCIN
     Indication: DIARRHOEA
     Dosage: UNK
     Route: 042
     Dates: start: 20160618, end: 20160721
  2. IBUPROFEN. [Concomitant]
     Active Substance: IBUPROFEN
     Dosage: UNK
  3. VANCOMYCIN [Concomitant]
     Active Substance: VANCOMYCIN
     Dosage: UNK
  4. TAZOCIN [Suspect]
     Active Substance: PIPERACILLIN SODIUM\TAZOBACTAM SODIUM
     Indication: DIARRHOEA
     Dosage: UNKNOWN
     Route: 042
     Dates: start: 20160618, end: 20160721
  5. PARACETAMOL [Concomitant]
     Active Substance: ACETAMINOPHEN
  6. PIRITON [Concomitant]
     Active Substance: CHLORPHENIRAMINE MALEATE
     Dosage: UNK

REACTIONS (4)
  - Pyrexia [Recovering/Resolving]
  - Anaphylactic reaction [Recovered/Resolved]
  - Lethargy [Recovering/Resolving]
  - Dermatitis allergic [Recovering/Resolving]

NARRATIVE: CASE EVENT DATE: 20160618
